FAERS Safety Report 23149724 (Version 13)
Quarter: 2025Q3

REPORT INFORMATION
  Report Type: Spontaneous
  Country: EU (occurrence: EU)
  Receive Date: 20231106
  Receipt Date: 20250801
  Transmission Date: 20251020
  Serious: Yes (Death, Hospitalization, Other)
  Sender: SANDOZ
  Company Number: EU-SELLA-20230127

PATIENT
  Age: 17 Year
  Sex: Female
  Weight: 56 kg

DRUGS (37)
  1. ANAPEINE [Suspect]
     Active Substance: ROPIVACAINE HYDROCHLORIDE
     Indication: Analgesic therapy
     Route: 065
  2. CLONIDINE [Suspect]
     Active Substance: CLONIDINE
     Indication: Palliative sedation
     Route: 065
  3. CLOZAPINE [Suspect]
     Active Substance: CLOZAPINE
     Dosage: 12.5 MG, 1 DOSE 12 HOURS (12.5 MG X 2 /DIE Q12H)
     Route: 048
     Dates: start: 20220903, end: 20220913
  4. CLOZAPINE [Suspect]
     Active Substance: CLOZAPINE
     Dosage: 25 MG (25 MG 12.5 MG 2 /DIE Q12H)
     Route: 065
     Dates: start: 20220903, end: 20220913
  5. CLOZAPINE [Suspect]
     Active Substance: CLOZAPINE
     Indication: Psychotic disorder
     Route: 065
  6. CLOZAPINE [Suspect]
     Active Substance: CLOZAPINE
     Route: 065
  7. CLOZAPINE [Suspect]
     Active Substance: CLOZAPINE
     Route: 065
     Dates: start: 20220913
  8. CLOZAPINE [Suspect]
     Active Substance: CLOZAPINE
     Indication: Palliative sedation
     Route: 065
  9. COTRIMOXAZOLE [Suspect]
     Active Substance: SULFAMETHOXAZOLE\TRIMETHOPRIM
     Indication: Ewing^s sarcoma
     Route: 065
     Dates: start: 2022
  10. COTRIMOXAZOLE [Suspect]
     Active Substance: SULFAMETHOXAZOLE\TRIMETHOPRIM
     Indication: Palliative care
  11. DECADRON (DEXAMETHASONE SODIUM PHOSPHATE) [Suspect]
     Active Substance: DEXAMETHASONE SODIUM PHOSPHATE
     Indication: Ewing^s sarcoma
     Route: 065
     Dates: start: 2022
  12. DECADRON (DEXAMETHASONE SODIUM PHOSPHATE) [Suspect]
     Active Substance: DEXAMETHASONE SODIUM PHOSPHATE
     Indication: Pain
  13. DECADRON (DEXAMETHASONE SODIUM PHOSPHATE) [Suspect]
     Active Substance: DEXAMETHASONE SODIUM PHOSPHATE
     Indication: Palliative care
  14. DULOXETINE HYDROCHLORIDE [Suspect]
     Active Substance: DULOXETINE HYDROCHLORIDE
     Indication: Palliative sedation
     Route: 065
     Dates: start: 2022
  15. DULOXETINE HYDROCHLORIDE [Suspect]
     Active Substance: DULOXETINE HYDROCHLORIDE
     Indication: Ewing^s sarcoma
  16. DULOXETINE HYDROCHLORIDE [Suspect]
     Active Substance: DULOXETINE HYDROCHLORIDE
     Indication: Pain
  17. DULOXETINE HYDROCHLORIDE [Suspect]
     Active Substance: DULOXETINE HYDROCHLORIDE
     Indication: Palliative care
  18. DULOXETINE [Suspect]
     Active Substance: DULOXETINE
     Indication: Ewing^s sarcoma
     Route: 065
     Dates: start: 2022
  19. DULOXETINE [Suspect]
     Active Substance: DULOXETINE
     Indication: Pain
  20. DULOXETINE [Suspect]
     Active Substance: DULOXETINE
     Indication: Palliative care
  21. DULOXETINE [Suspect]
     Active Substance: DULOXETINE
     Indication: Palliative sedation
  22. FENTANYL [Suspect]
     Active Substance: FENTANYL
     Indication: Ewing^s sarcoma
     Route: 062
     Dates: start: 2022
  23. FENTANYL [Suspect]
     Active Substance: FENTANYL
     Indication: Pain
  24. FENTANYL [Suspect]
     Active Substance: FENTANYL
     Indication: Palliative care
  25. MIDAZOLAM HYDROCHLORIDE [Suspect]
     Active Substance: MIDAZOLAM HYDROCHLORIDE
     Indication: Product used for unknown indication
     Route: 065
  26. MORPHINE HYDROCHLORIDE [Suspect]
     Active Substance: MORPHINE HYDROCHLORIDE
     Indication: Ewing^s sarcoma
     Route: 048
     Dates: start: 2022
  27. MORPHINE HYDROCHLORIDE [Suspect]
     Active Substance: MORPHINE HYDROCHLORIDE
     Indication: Pain
     Route: 048
  28. MORPHINE [Suspect]
     Active Substance: MORPHINE
     Indication: Product used for unknown indication
     Route: 048
  29. OMEPRAZOLE [Suspect]
     Active Substance: OMEPRAZOLE
     Indication: Ewing^s sarcoma
     Route: 065
     Dates: start: 2022
  30. OMEPRAZOLE [Suspect]
     Active Substance: OMEPRAZOLE
     Indication: Palliative care
  31. ONDANSETRON HYDROCHLORIDE [Suspect]
     Active Substance: ONDANSETRON HYDROCHLORIDE
     Indication: Ewing^s sarcoma
     Route: 065
     Dates: start: 2022
  32. ONDANSETRON HYDROCHLORIDE [Suspect]
     Active Substance: ONDANSETRON HYDROCHLORIDE
     Indication: Palliative care
  33. PREGABALIN [Suspect]
     Active Substance: PREGABALIN
     Indication: Ewing^s sarcoma
     Route: 065
     Dates: start: 2022
  34. PREGABALIN [Suspect]
     Active Substance: PREGABALIN
     Indication: Palliative care
     Route: 040
  35. ACETAMINOPHEN [Suspect]
     Active Substance: ACETAMINOPHEN
     Indication: Ewing^s sarcoma
     Route: 065
     Dates: start: 2022
  36. ACETAMINOPHEN [Suspect]
     Active Substance: ACETAMINOPHEN
     Indication: Pain
  37. ACETAMINOPHEN [Suspect]
     Active Substance: ACETAMINOPHEN
     Indication: Palliative care

REACTIONS (19)
  - Drug ineffective [Fatal]
  - Off label use [Fatal]
  - Anxiety [Unknown]
  - Pain [Not Recovered/Not Resolved]
  - Vomiting [Unknown]
  - Pyrexia [Unknown]
  - Nausea [Unknown]
  - Psychomotor hyperactivity [Unknown]
  - Urine output decreased [Unknown]
  - Haematuria [Unknown]
  - Psychomotor hyperactivity [Unknown]
  - Asthenia [Unknown]
  - Decreased appetite [Unknown]
  - Dyspnoea [Unknown]
  - Weight decreased [Unknown]
  - Feeling of despair [Unknown]
  - Product use in unapproved indication [Unknown]
  - Dizziness [Recovering/Resolving]
  - Movement disorder [Recovering/Resolving]

NARRATIVE: CASE EVENT DATE: 20220101
